FAERS Safety Report 9399195 (Version 2)
Quarter: 2013Q3

REPORT INFORMATION
  Report Type: Spontaneous
  Country: GB (occurrence: None)
  Receive Date: 20130710
  Receipt Date: 20130715
  Transmission Date: 20140515
  Serious: Yes (Other)
  Sender: FDA-Public Use
  Company Number: AUR-APL-2013-05697

PATIENT
  Age: 73 Year
  Sex: Female

DRUGS (2)
  1. TERBINAFINE [Suspect]
     Indication: FUNGAL INFECTION
     Route: 048
     Dates: start: 20130529, end: 20130606
  2. ASPIRIN (ACETYLSALICYCLIC ACID) [Concomitant]

REACTIONS (4)
  - Diarrhoea [None]
  - Dizziness [None]
  - Rash erythematous [None]
  - Feeling hot [None]
